FAERS Safety Report 5337757-1 (Version None)
Quarter: 2007Q2

REPORT INFORMATION
  Report Type: 
  Country: None (occurrence: None)
  Receive Date: 20070308
  Receipt Date: 20061207
  Transmission Date: 20071010
  Serious: No
  Sender: FDA-Public Use
  Company Number: 2006-BP-14229BP

PATIENT
  Age: 71 Year
  Sex: Female

DRUGS (5)
  1. SPIRIVA [Suspect]
     Indication: CHRONIC OBSTRUCTIVE PULMONARY DISEASE
     Dosage: 18 MCG (18 MCG), IH
     Route: 055
     Dates: start: 20061126
  2. ALBUTEROL [Concomitant]
  3. ADVAIR (SERETIDE) [Concomitant]
  4. COMBIVENT [Concomitant]
  5. ATIVAN [Concomitant]

REACTIONS (1)
  - TREMOR [None]
